FAERS Safety Report 18874268 (Version 1)
Quarter: 2021Q1

REPORT INFORMATION
  Report Type: Spontaneous
  Country: US (occurrence: US)
  Receive Date: 20210210
  Receipt Date: 20210210
  Transmission Date: 20210420
  Serious: No
  Sender: FDA-Public Use
  Company Number: US-TEIKOKU PHARMA USA-TPU2021-00032

PATIENT
  Sex: Female
  Weight: 40.86 kg

DRUGS (2)
  1. LIDOCAINE PATCH [Suspect]
     Active Substance: LIDOCAINE
     Indication: ARTHRITIS
     Route: 061
     Dates: end: 2016
  2. LIDOCAINE PATCH [Suspect]
     Active Substance: LIDOCAINE
     Indication: SCOLIOSIS
     Route: 061
     Dates: start: 201912

REACTIONS (1)
  - Insurance issue [Recovered/Resolved]

NARRATIVE: CASE EVENT DATE: 2016
